FAERS Safety Report 9413607 (Version 2)
Quarter: 2013Q3

REPORT INFORMATION
  Report Type: Spontaneous
  Country: US (occurrence: US)
  Receive Date: 20130722
  Receipt Date: 20130812
  Transmission Date: 20140515
  Serious: No
  Sender: FDA-Public Use
  Company Number: US-PFIZER INC-2013210516

PATIENT
  Age: 73 Year
  Sex: Male
  Weight: 127 kg

DRUGS (3)
  1. SILDENAFIL CITRATE [Suspect]
     Dosage: 60 MG, (20 MG X 3 TABLETS)
     Dates: start: 20130713
  2. SILDENAFIL CITRATE [Suspect]
     Dosage: 2 DF, UNK
     Route: 048
     Dates: start: 20130713
  3. SILDENAFIL CITRATE [Suspect]
     Dosage: 3 DF, UNK
     Route: 048
     Dates: start: 20130714

REACTIONS (5)
  - Drug dispensing error [Unknown]
  - Suspected counterfeit product [Unknown]
  - Drug ineffective [Unknown]
  - Feeling hot [Unknown]
  - Erythema [Unknown]
